FAERS Safety Report 5837195-9 (Version None)
Quarter: 2008Q3

REPORT INFORMATION
  Report Type: 
  Country: None (occurrence: None)
  Receive Date: 20080807
  Receipt Date: 20080729
  Transmission Date: 20090109
  Serious: Yes (Hospitalization)
  Sender: FDA-Public Use
  Company Number: NL-WYE-H03666108

PATIENT
  Sex: Female

DRUGS (5)
  1. PANTOPRAZOLE SODIUM [Suspect]
     Indication: HELICOBACTER GASTRITIS
     Dosage: 20 MG FREQUENCY UNKNOWN
     Route: 048
     Dates: start: 20080110, end: 20080116
  2. FERROFUMARAT [Suspect]
  3. OMEPRAZOLE [Concomitant]
  4. AMOXICILLIN [Suspect]
     Indication: HELICOBACTER GASTRITIS
     Dosage: 375 MG FREQUENCY UNKNOWN
     Route: 048
     Dates: start: 20080110, end: 20080116
  5. KLACID [Suspect]
     Indication: HELICOBACTER GASTRITIS
     Dosage: 250 MG FREQUENCY UNKNOWN
     Route: 048
     Dates: start: 20080110, end: 20080116

REACTIONS (1)
  - DRUG RASH WITH EOSINOPHILIA AND SYSTEMIC SYMPTOMS [None]
